FAERS Safety Report 6339582-1 (Version None)
Quarter: 2009Q3

REPORT INFORMATION
  Report Type: 
  Country: None (occurrence: None)
  Receive Date: 20090903
  Receipt Date: 20090316
  Transmission Date: 20100115
  Serious: No
  Sender: FDA-Public Use
  Company Number: US-ALLERGAN-0903555US

PATIENT
  Age: 7 Year
  Sex: Female

DRUGS (1)
  1. ELIMITE [Suspect]
     Indication: ACARODERMATITIS
     Dates: start: 20090312, end: 20090313

REACTIONS (2)
  - INAPPROPRIATE SCHEDULE OF DRUG ADMINISTRATION [None]
  - RASH [None]
